FAERS Safety Report 10015262 (Version 1)
Quarter: 2014Q1

REPORT INFORMATION
  Report Type: Spontaneous
  Country: US (occurrence: US)
  Receive Date: 20140317
  Receipt Date: 20140317
  Transmission Date: 20141002
  Serious: No
  Sender: FDA-Public Use
  Company Number: US-PFIZER INC-2014072883

PATIENT
  Age: 16 Year
  Sex: Female

DRUGS (4)
  1. GENOTROPIN [Suspect]
     Indication: HYPOPITUITARISM
     Dosage: 1.4 MG, DAILY (7 DAYS PER WEEK)
     Route: 058
  2. SYNTHROID [Concomitant]
  3. RISPERDAL [Concomitant]
  4. CITALOPRAM [Concomitant]

REACTIONS (1)
  - Headache [Unknown]
